FAERS Safety Report 17142132 (Version 3)
Quarter: 2020Q2

REPORT INFORMATION
  Report Type: Spontaneous
  Country: US (occurrence: US)
  Receive Date: 20191211
  Receipt Date: 20200625
  Transmission Date: 20200713
  Serious: Yes (Other)
  Sender: FDA-Public Use
  Company Number: US-ASTRAZENECA-2019SF75894

PATIENT
  Age: 59 Year
  Sex: Female
  Weight: 89.8 kg

DRUGS (79)
  1. NEXIUM 24HR [Suspect]
     Active Substance: ESOMEPRAZOLE MAGNESIUM
     Indication: GASTROOESOPHAGEAL REFLUX DISEASE
     Route: 048
     Dates: start: 2004
  2. PROTONIX [Suspect]
     Active Substance: PANTOPRAZOLE SODIUM
     Indication: GASTROOESOPHAGEAL REFLUX DISEASE
     Dosage: GENERIC
     Route: 065
     Dates: start: 2012
  3. PROTONIX [Suspect]
     Active Substance: PANTOPRAZOLE SODIUM
     Indication: GASTROOESOPHAGEAL REFLUX DISEASE
     Dosage: GENERIC
     Route: 048
     Dates: start: 20121205
  4. GABAPENTIN. [Concomitant]
     Active Substance: GABAPENTIN
  5. LOSARTAN. [Concomitant]
     Active Substance: LOSARTAN
  6. VITAMIN D3 [Concomitant]
     Active Substance: CHOLECALCIFEROL
  7. DILTIAZEM. [Concomitant]
     Active Substance: DILTIAZEM
  8. GLIPIZIDE. [Concomitant]
     Active Substance: GLIPIZIDE
  9. LEXAPRO [Concomitant]
     Active Substance: ESCITALOPRAM OXALATE
  10. COREG [Concomitant]
     Active Substance: CARVEDILOL
     Indication: ANAEMIA
     Dates: start: 2016
  11. VIBRAMYCIN [Concomitant]
     Active Substance: DOXYCYCLINE
  12. ZOFRAN [Concomitant]
     Active Substance: ONDANSETRON HYDROCHLORIDE
  13. ATORVASTATIN [Concomitant]
     Active Substance: ATORVASTATIN
     Indication: BLOOD CHOLESTEROL INCREASED
     Route: 065
     Dates: start: 2016
  14. RESTORIL [Concomitant]
     Active Substance: TEMAZEPAM
  15. SYNTHROID [Concomitant]
     Active Substance: LEVOTHYROXINE SODIUM
  16. VESICARE [Concomitant]
     Active Substance: SOLIFENACIN SUCCINATE
  17. LOVASTATIN. [Concomitant]
     Active Substance: LOVASTATIN
  18. NIFEDICAL XL [Concomitant]
     Active Substance: NIFEDIPINE
  19. CARVEDILOL. [Concomitant]
     Active Substance: CARVEDILOL
  20. PRILOSEC OTC [Suspect]
     Active Substance: OMEPRAZOLE MAGNESIUM
     Indication: GASTROOESOPHAGEAL REFLUX DISEASE
     Route: 048
     Dates: start: 1996, end: 1998
  21. TAGAMET [Concomitant]
     Active Substance: CIMETIDINE
     Route: 065
  22. QUESTRAN [Concomitant]
     Active Substance: CHOLESTYRAMINE
  23. LASIX [Concomitant]
     Active Substance: FUROSEMIDE
  24. NITROSTAT [Concomitant]
     Active Substance: NITROGLYCERIN
  25. NOVOLOG [Concomitant]
     Active Substance: INSULIN ASPART
  26. CLONIDINE. [Concomitant]
     Active Substance: CLONIDINE
  27. ALBUTEROL. [Concomitant]
     Active Substance: ALBUTEROL
     Indication: ASTHMA
     Dates: start: 2016
  28. WELLBUTRIN [Concomitant]
     Active Substance: BUPROPION HYDROCHLORIDE
  29. FEBUXOSTAT. [Concomitant]
     Active Substance: FEBUXOSTAT
  30. PROTONIX [Suspect]
     Active Substance: PANTOPRAZOLE SODIUM
     Indication: GASTROOESOPHAGEAL REFLUX DISEASE
     Route: 065
     Dates: start: 2000
  31. PROTONIX [Suspect]
     Active Substance: PANTOPRAZOLE SODIUM
     Indication: GASTROOESOPHAGEAL REFLUX DISEASE
     Route: 065
     Dates: start: 2004
  32. CARVEDILOL. [Concomitant]
     Active Substance: CARVEDILOL
  33. NORCO [Concomitant]
     Active Substance: ACETAMINOPHEN\HYDROCODONE BITARTRATE
  34. HYDROCODONE [Concomitant]
     Active Substance: HYDROCODONE
  35. ULORIC [Concomitant]
     Active Substance: FEBUXOSTAT
  36. GLUCOPHAGE [Concomitant]
     Active Substance: METFORMIN HYDROCHLORIDE
  37. METOPROLOL. [Concomitant]
     Active Substance: METOPROLOL
     Indication: ANAEMIA
     Dates: start: 2016
  38. RISPERIDONE. [Concomitant]
     Active Substance: RISPERIDONE
  39. PROCHLORPERAZINE. [Concomitant]
     Active Substance: PROCHLORPERAZINE
     Indication: NAUSEA
     Route: 065
     Dates: start: 2019
  40. TYLENOL [Concomitant]
     Active Substance: ACETAMINOPHEN
     Indication: PAIN
     Route: 065
     Dates: start: 2015
  41. PEPCID [Concomitant]
     Active Substance: FAMOTIDINE
  42. ASPIRIN. [Concomitant]
     Active Substance: ASPIRIN
  43. DULERA [Concomitant]
     Active Substance: FORMOTEROL FUMARATE DIHYDRATE\MOMETASONE FUROATE
  44. SIMVASTATIN. [Concomitant]
     Active Substance: SIMVASTATIN
  45. POTASSIUM CHLORIDE. [Concomitant]
     Active Substance: POTASSIUM CHLORIDE
  46. ISOSORBIDE. [Concomitant]
     Active Substance: ISOSORBIDE
  47. IRON [Concomitant]
     Active Substance: IRON
  48. PLAVIX [Concomitant]
     Active Substance: CLOPIDOGREL BISULFATE
  49. HALOPERIDOL. [Concomitant]
     Active Substance: HALOPERIDOL
  50. AMOXICILLIN. [Concomitant]
     Active Substance: AMOXICILLIN
  51. ADVAIR HFA [Concomitant]
     Active Substance: FLUTICASONE PROPIONATE\SALMETEROL XINAFOATE
  52. PREVACID [Suspect]
     Active Substance: LANSOPRAZOLE
     Indication: GASTROOESOPHAGEAL REFLUX DISEASE
     Route: 065
  53. ZANTAC [Concomitant]
     Active Substance: RANITIDINE HYDROCHLORIDE
     Route: 065
  54. SPIRIVA [Concomitant]
     Active Substance: TIOTROPIUM BROMIDE MONOHYDRATE
  55. SYMBICORT [Concomitant]
     Active Substance: BUDESONIDE\FORMOTEROL FUMARATE DIHYDRATE
  56. BRILINTA [Concomitant]
     Active Substance: TICAGRELOR
  57. ENTRESTO [Concomitant]
     Active Substance: SACUBITRIL\VALSARTAN
  58. COLCHICINE. [Concomitant]
     Active Substance: COLCHICINE
  59. DIVALPROEX [Concomitant]
     Active Substance: DIVALPROEX SODIUM
  60. METOLAZONE. [Concomitant]
     Active Substance: METOLAZONE
  61. RISPERIDONE. [Concomitant]
     Active Substance: RISPERIDONE
  62. LACTULOSE. [Concomitant]
     Active Substance: LACTULOSE
  63. METOPROLOL. [Concomitant]
     Active Substance: METOPROLOL
  64. CLOZARIL [Concomitant]
     Active Substance: CLOZAPINE
  65. PERCOCET [Concomitant]
     Active Substance: ACETAMINOPHEN\OXYCODONE HYDROCHLORIDE
  66. ZYLOPRIM [Concomitant]
     Active Substance: ALLOPURINOL
  67. PRILOSEC [Suspect]
     Active Substance: OMEPRAZOLE MAGNESIUM
     Indication: GASTROOESOPHAGEAL REFLUX DISEASE
     Route: 048
     Dates: start: 1996, end: 1998
  68. VENTOLIN [Concomitant]
     Active Substance: ALBUTEROL SULFATE
     Indication: BRONCHOSPASM
     Route: 065
     Dates: start: 2016
  69. BUPROPION. [Concomitant]
     Active Substance: BUPROPION
     Indication: ANXIETY
     Route: 065
     Dates: start: 2016
  70. FOLIC ACID. [Concomitant]
     Active Substance: FOLIC ACID
  71. LAMICTAL [Concomitant]
     Active Substance: LAMOTRIGINE
  72. CHERATUSSIN [Concomitant]
     Active Substance: AMMONIUM CHLORIDE\DEXTROMETHORPHAN\SODIUM CITRATE
  73. PREVACID [Suspect]
     Active Substance: LANSOPRAZOLE
     Indication: GASTROOESOPHAGEAL REFLUX DISEASE
     Route: 065
     Dates: start: 2004
  74. PROTONIX [Suspect]
     Active Substance: PANTOPRAZOLE SODIUM
     Indication: GASTROOESOPHAGEAL REFLUX DISEASE
     Dosage: GENERIC
     Route: 065
     Dates: start: 2012
  75. IMODIUM A-D [Concomitant]
     Active Substance: LOPERAMIDE HYDROCHLORIDE
     Indication: BOWEL MOVEMENT IRREGULARITY
     Route: 065
     Dates: start: 2016
  76. HYDRALAZINE [Concomitant]
     Active Substance: HYDRALAZINE HYDROCHLORIDE
  77. CALCITRIOL. [Concomitant]
     Active Substance: CALCITRIOL
  78. SPIRONOLACTONE. [Concomitant]
     Active Substance: SPIRONOLACTONE
  79. ONDASETRON [Concomitant]
     Active Substance: ONDANSETRON

REACTIONS (5)
  - Acute kidney injury [Unknown]
  - End stage renal disease [Unknown]
  - Renal failure [Not Recovered/Not Resolved]
  - Chronic kidney disease [Not Recovered/Not Resolved]
  - Nephrogenic anaemia [Unknown]

NARRATIVE: CASE EVENT DATE: 2015
